FAERS Safety Report 8722364 (Version 3)
Quarter: 2013Q4

REPORT INFORMATION
  Report Type: Spontaneous
  Country: JP (occurrence: JP)
  Receive Date: 20120814
  Receipt Date: 20131105
  Transmission Date: 20140711
  Serious: Yes (Death, Hospitalization)
  Sender: FDA-Public Use
  Company Number: JP-009507513-1208JPN004597

PATIENT
  Age: 61 Year
  Sex: Male

DRUGS (1)
  1. TEMODAL [Suspect]
     Indication: ASTROCYTOMA

REACTIONS (1)
  - Pneumocystis jirovecii pneumonia [Fatal]
